FAERS Safety Report 16136928 (Version 1)
Quarter: 2019Q2

REPORT INFORMATION
  Report Type: Spontaneous
  Country: FR (occurrence: FR)
  Receive Date: 20190401
  Receipt Date: 20190401
  Transmission Date: 20190711
  Serious: Yes (Life-Threatening)
  Sender: FDA-Public Use
  Company Number: FR-ACCORD-117166

PATIENT
  Age: 68 Year
  Sex: Female
  Weight: 56 kg

DRUGS (8)
  1. AMIKACIN. [Concomitant]
     Active Substance: AMIKACIN
  2. GRANULOCYTE COLONY STIMULATING [Concomitant]
     Active Substance: GRANULOCYTE COLONY-STIMULATING FACTOR NOS
  3. FLUOROURACIL ACCORD [Suspect]
     Active Substance: FLUOROURACIL
     Indication: ADENOCARCINOMA OF COLON
     Dosage: STRENGTH: 50 MG/ML, C1-C2: 1300MG / CYCLE + 4000MG AND C3: 3900MG
     Route: 042
     Dates: start: 20180924, end: 20181022
  4. CALCIUM FOLINATE [Suspect]
     Active Substance: LEUCOVORIN CALCIUM
     Indication: ADENOCARCINOMA OF COLON
     Dosage: C1-C2: 680 MG / CYCLE AND C3: 640 MG / CYCLE
     Route: 042
     Dates: start: 20180924, end: 20181023
  5. ONDANSETRON [Concomitant]
     Active Substance: ONDANSETRON
  6. APREPITANT. [Concomitant]
     Active Substance: APREPITANT
  7. METHYLPREDNISOLONE. [Concomitant]
     Active Substance: METHYLPREDNISOLONE
  8. OXALIPLATIN. [Suspect]
     Active Substance: OXALIPLATIN
     Indication: ADENOCARCINOMA OF COLON
     Dosage: C1-C2: 140 MG / CYCLE AND C3: 120 MG / CYCLE
     Route: 042
     Dates: start: 20180924, end: 20181023

REACTIONS (6)
  - Enteritis infectious [Recovering/Resolving]
  - Vomiting [Recovering/Resolving]
  - Leukopenia [Recovering/Resolving]
  - Thrombocytopenia [Recovering/Resolving]
  - Diarrhoea [Recovering/Resolving]
  - Neutropenia [Recovering/Resolving]

NARRATIVE: CASE EVENT DATE: 20181027
